FAERS Safety Report 6628837 (Version 2)
Quarter: 2015Q3

REPORT INFORMATION
  Report Type: Spontaneous
  Country: US (occurrence: US)
  Receive Date: 20080429
  Receipt Date: 20150728
  Transmission Date: 20151125
  Serious: No
  Sender: FDA-Public Use
  Company Number: US-ASTRAZENECA-2008UW00538

PATIENT
  Age: 78 Year
  Sex: Male
  Weight: 70.8 kg

DRUGS (8)
  1. SYMBICORT [Suspect]
     Active Substance: BUDESONIDE\FORMOTEROL FUMARATE DIHYDRATE
     Indication: WHEEZING
     Dosage: 150/4.5 UG, TWO PUFFS, AT NIGHT
     Route: 055
     Dates: start: 201504
  2. SYMBICORT [Suspect]
     Active Substance: BUDESONIDE\FORMOTEROL FUMARATE DIHYDRATE
     Indication: WHEEZING
     Dosage: 150/4.5 UG, TWO PUFFS, TWO TIMES A DAY
     Route: 055
     Dates: start: 201504, end: 201507
  3. NEXIUM [Suspect]
     Active Substance: ESOMEPRAZOLE MAGNESIUM
     Indication: HAEMATOCHEZIA
     Route: 048
     Dates: start: 2007
  4. NEXIUM [Suspect]
     Active Substance: ESOMEPRAZOLE MAGNESIUM
     Indication: ERUCTATION
     Route: 048
     Dates: start: 2007
  5. SYMBICORT [Suspect]
     Active Substance: BUDESONIDE\FORMOTEROL FUMARATE DIHYDRATE
     Indication: ASTHMA
     Dosage: 150/4.5 UG, TWO PUFFS, AT NIGHT
     Route: 055
     Dates: start: 201504
  6. NEXIUM [Suspect]
     Active Substance: ESOMEPRAZOLE MAGNESIUM
     Indication: DYSPEPSIA
     Route: 048
     Dates: start: 2007
  7. SYMBICORT [Suspect]
     Active Substance: BUDESONIDE\FORMOTEROL FUMARATE DIHYDRATE
     Indication: ASTHMA
     Dosage: 150/4.5 UG, TWO PUFFS, TWO TIMES A DAY
     Route: 055
     Dates: start: 201504, end: 201507
  8. SEREVENT DISKUS [Concomitant]
     Active Substance: SALMETEROL XINAFOATE

REACTIONS (6)
  - Increased upper airway secretion [Recovering/Resolving]
  - Cough [Recovering/Resolving]
  - Inappropriate schedule of drug administration [Unknown]
  - Productive cough [Recovering/Resolving]
  - Blood pressure increased [Recovering/Resolving]
  - Dysphonia [Recovering/Resolving]

NARRATIVE: CASE EVENT DATE: 2015
